FAERS Safety Report 7590404-0 (Version None)
Quarter: 2011Q2

REPORT INFORMATION
  Report Type: 
  Country: None (occurrence: None)
  Receive Date: 20110628
  Receipt Date: 20110615
  Transmission Date: 20111010
  Serious: Yes (Hospitalization)
  Sender: FDA-Public Use
  Company Number: 1000021712

PATIENT
  Age: 73 Year
  Sex: Female
  Weight: 80 kg

DRUGS (5)
  1. LORAZEPAM [Concomitant]
  2. SIMVASTATIN (SIMVASTATIN) (SIMVASATIN) [Concomitant]
  3. MIRTAZAPINE [Concomitant]
  4. LISINOPRIL [Concomitant]
  5. ESCITALOPRAM OXALATE [Suspect]
     Dosage: ORAL
     Route: 048

REACTIONS (5)
  - HYPONATRAEMIA [None]
  - AGGRESSION [None]
  - PALLOR [None]
  - CONFUSIONAL STATE [None]
  - DYSPNOEA [None]
